FAERS Safety Report 8833323 (Version 2)
Quarter: 2012Q4

REPORT INFORMATION
  Report Type: 
  Country: DE (occurrence: DE)
  Receive Date: 20121010
  Receipt Date: 20121017
  Transmission Date: 20130627
  Serious: Yes (Other)
  Sender: FDA-Public Use
  Company Number: DE-TEVA-361991GER

PATIENT

DRUGS (1)
  1. COPAXONE [Suspect]
     Indication: MULTIPLE SCLEROSIS

REACTIONS (4)
  - Hepatic neoplasm [Not Recovered/Not Resolved]
  - Multiple sclerosis relapse [Unknown]
  - Hepatic enzyme increased [Unknown]
  - Visual field defect [Unknown]
